FAERS Safety Report 4499934-1 (Version None)
Quarter: 2004Q4

REPORT INFORMATION
  Report Type: 
  Country: None (occurrence: None)
  Receive Date: 20041112
  Receipt Date: 20030130
  Transmission Date: 20050328
  Serious: Yes (Hospitalization, Disabling, Other)
  Sender: FDA-Public Use
  Company Number: US-MERCK-0302USA00004

PATIENT
  Age: 54 Year
  Sex: Female
  Weight: 61 kg

DRUGS (10)
  1. VIOXX [Suspect]
     Indication: BACK PAIN
     Route: 048
     Dates: start: 19990101
  2. VIOXX [Suspect]
     Route: 048
     Dates: end: 20000101
  3. CELEBREX [Concomitant]
     Indication: BACK PAIN
     Route: 065
  4. VICODIN [Concomitant]
     Route: 065
  5. PERCOCET [Concomitant]
     Route: 065
  6. DARVOCET-N 100 [Concomitant]
     Route: 065
  7. SOMA [Concomitant]
     Route: 065
  8. OXYCONTIN [Concomitant]
     Route: 065
  9. IBUPROFEN [Concomitant]
     Route: 065
  10. ALEVE [Concomitant]
     Route: 065
     Dates: start: 19930101

REACTIONS (22)
  - ANXIETY [None]
  - BLOOD CHOLESTEROL INCREASED [None]
  - BREAST DISORDER [None]
  - CARDIAC MURMUR [None]
  - CARDIAC VALVE DISEASE [None]
  - CERVICOBRACHIAL SYNDROME [None]
  - DEPRESSION [None]
  - DIZZINESS [None]
  - DYSPNOEA [None]
  - DYSURIA [None]
  - GASTROOESOPHAGEAL REFLUX DISEASE [None]
  - HEART RATE IRREGULAR [None]
  - HYPERTENSION [None]
  - INTERVERTEBRAL DISC DISORDER [None]
  - MICTURITION URGENCY [None]
  - MUSCLE STRAIN [None]
  - NOCTURIA [None]
  - OSTEOARTHRITIS [None]
  - OSTEOPENIA [None]
  - POLLAKIURIA [None]
  - ROTATOR CUFF SYNDROME [None]
  - SLEEP APNOEA SYNDROME [None]
